FAERS Safety Report 5362009-3 (Version None)
Quarter: 2007Q2

REPORT INFORMATION
  Report Type: 
  Country: None (occurrence: None)
  Receive Date: 20070619
  Receipt Date: 20070614
  Transmission Date: 20071010
  Serious: Yes (Other)
  Sender: FDA-Public Use
  Company Number: JP-BRISTOL-MYERS SQUIBB COMPANY-13814603

PATIENT
  Age: 55 Year
  Sex: Female

DRUGS (4)
  1. LASTET [Suspect]
     Indication: OVARIAN NEOPLASM
     Route: 041
     Dates: start: 20070507
  2. BLEOMYCIN [Suspect]
     Indication: OVARIAN NEOPLASM
     Route: 041
     Dates: start: 20070507
  3. RANDA [Suspect]
     Indication: OVARIAN NEOPLASM
     Route: 041
     Dates: start: 20070507
  4. KYTRIL [Concomitant]
     Dates: start: 20070507

REACTIONS (1)
  - NEUTROPENIA [None]
